FAERS Safety Report 4597830-2 (Version None)
Quarter: 2005Q1

REPORT INFORMATION
  Report Type: 
  Country: None (occurrence: None)
  Receive Date: 20050125
  Receipt Date: 20041116
  Transmission Date: 20050727
  Serious: No
  Sender: FDA-Public Use
  Company Number: USA030125385

PATIENT
  Age: 73 Year
  Sex: Female
  Weight: 65 kg

DRUGS (6)
  1. FORTEO [Suspect]
     Indication: OSTEOPOROSIS
     Dosage: 20 UG/DAY
     Dates: start: 20021220
  2. CALCIUM GLUCONATE [Concomitant]
  3. HYDROCHLOROTHIAZIDE [Concomitant]
  4. VITAMIN E [Concomitant]
  5. FOSAMAX [Concomitant]
  6. MULTI-VITAMINS [Concomitant]

REACTIONS (7)
  - ANOREXIA [None]
  - BLOOD PRESSURE ABNORMAL [None]
  - ECZEMA [None]
  - ERYTHEMA [None]
  - HEADACHE [None]
  - INSOMNIA [None]
  - MEDICATION ERROR [None]
